FAERS Safety Report 12132587 (Version 1)
Quarter: 2016Q1

REPORT INFORMATION
  Report Type: Spontaneous
  Country: US (occurrence: US)
  Receive Date: 20160301
  Receipt Date: 20160301
  Transmission Date: 20160526
  Serious: No
  Sender: FDA-Public Use
  Company Number: US-JNJFOC-20160118941

PATIENT
  Age: 67 Year
  Sex: Male
  Weight: 77.11 kg

DRUGS (3)
  1. ASPIRIN. [Interacting]
     Active Substance: ASPIRIN
     Indication: PRODUCT USED FOR UNKNOWN INDICATION
     Route: 065
     Dates: end: 20160122
  2. XARELTO [Suspect]
     Active Substance: RIVAROXABAN
     Indication: CEREBROVASCULAR ACCIDENT PROPHYLAXIS
     Route: 048
     Dates: start: 201601
  3. XARELTO [Suspect]
     Active Substance: RIVAROXABAN
     Indication: ATRIAL FIBRILLATION
     Route: 048
     Dates: start: 201601

REACTIONS (8)
  - Back pain [Recovering/Resolving]
  - Abdominal distension [Recovering/Resolving]
  - Burning sensation [Recovering/Resolving]
  - Chest pain [Recovering/Resolving]
  - Product lot number issue [Unknown]
  - Flatulence [Recovering/Resolving]
  - Drug interaction [Unknown]
  - Product shape issue [Unknown]

NARRATIVE: CASE EVENT DATE: 201601
